FAERS Safety Report 7049975-5 (Version None)
Quarter: 2010Q4

REPORT INFORMATION
  Report Type: 
  Country: None (occurrence: None)
  Receive Date: 20101018
  Receipt Date: 20101012
  Transmission Date: 20110411
  Serious: Yes (Other)
  Sender: FDA-Public Use
  Company Number: PHHO2009BE07004

PATIENT
  Sex: Male
  Weight: 75.4 kg

DRUGS (1)
  1. FTY 720 FTY+ [Suspect]
     Indication: MULTIPLE SCLEROSIS
     Dosage: UNK
     Route: 048
     Dates: start: 20080318, end: 20090529

REACTIONS (7)
  - DIPLOPIA [None]
  - EYE MOVEMENT DISORDER [None]
  - EYE PAIN [None]
  - OPHTHALMOPLEGIA [None]
  - RHINORRHOEA [None]
  - SINUSITIS [None]
  - TOLOSA-HUNT SYNDROME [None]
